FAERS Safety Report 26016460 (Version 1)
Quarter: 2025Q4

REPORT INFORMATION
  Report Type: Spontaneous
  Country: US (occurrence: US)
  Receive Date: 20251110
  Receipt Date: 20251110
  Transmission Date: 20260118
  Serious: No
  Sender: MSN LABORATORIES PRIVATE LIMITED
  Company Number: US-MSNLABS-2025MSNSPO03213

PATIENT

DRUGS (3)
  1. PIRFENIDONE [Suspect]
     Active Substance: PIRFENIDONE
     Indication: Interstitial lung disease
     Route: 048
     Dates: start: 202509
  2. PIRFENIDONE [Suspect]
     Active Substance: PIRFENIDONE
     Route: 048
  3. PIRFENIDONE [Suspect]
     Active Substance: PIRFENIDONE
     Route: 048

REACTIONS (2)
  - Lethargy [Unknown]
  - Abdominal pain upper [Unknown]
